FAERS Safety Report 16043171 (Version 1)
Quarter: 2019Q1

REPORT INFORMATION
  Report Type: Spontaneous
  Country: GB (occurrence: GB)
  Receive Date: 20190306
  Receipt Date: 20190306
  Transmission Date: 20190418
  Serious: Yes (Other)
  Sender: FDA-Public Use
  Company Number: GB-MYLANLABS-2019M1020889

PATIENT
  Age: 42 Year
  Sex: Male
  Weight: 76 kg

DRUGS (5)
  1. PAROXETINE. [Suspect]
     Active Substance: PAROXETINE
     Indication: PRODUCT USED FOR UNKNOWN INDICATION
     Dosage: 10 MILLIGRAM
     Dates: start: 20181002
  2. THIAMINE. [Concomitant]
     Active Substance: THIAMINE
     Dosage: 1 DOSAGE FORM, QD (IN THE MORNING)
     Dates: start: 20180911, end: 20180912
  3. PROPRANOLOL [Concomitant]
     Active Substance: PROPRANOLOL HYDROCHLORIDE
     Dosage: 2 DOSAGE FORM, QD (IN THE MORNING)
     Dates: start: 20180911, end: 20180912
  4. TERBINAFINE. [Concomitant]
     Active Substance: TERBINAFINE
     Dosage: APPLY THINLY AS DIRECTED
     Dates: start: 20180705, end: 20180817
  5. FLUOXETINE [Concomitant]
     Active Substance: FLUOXETINE HYDROCHLORIDE
     Dosage: 2 DOSAGE FORM, QD
     Dates: start: 20180911, end: 20180912

REACTIONS (1)
  - Intentional self-injury [Unknown]

NARRATIVE: CASE EVENT DATE: 20181002
